FAERS Safety Report 13183524 (Version 1)
Quarter: 2017Q1

REPORT INFORMATION
  Report Type: Spontaneous
  Country: US (occurrence: US)
  Receive Date: 20170203
  Receipt Date: 20170203
  Transmission Date: 20170428
  Serious: Yes (Hospitalization)
  Sender: FDA-Public Use
  Company Number: US-AEGERION PHARMACEUTICAL INC.-AEGR002990

PATIENT
  Age: 33 Year
  Sex: Female

DRUGS (1)
  1. MYALEPT [Suspect]
     Active Substance: METRELEPTIN
     Indication: CONGENITAL GENERALISED LIPODYSTROPHY
     Dosage: 2 MG, BID
     Route: 058

REACTIONS (2)
  - Pancreatitis [Unknown]
  - Pancreatitis relapsing [Recovering/Resolving]

NARRATIVE: CASE EVENT DATE: 20170118
